FAERS Safety Report 7182765-1 (Version None)
Quarter: 2010Q4

REPORT INFORMATION
  Report Type: 
  Country: None (occurrence: None)
  Receive Date: 20101221
  Receipt Date: 20100526
  Transmission Date: 20110411
  Serious: No
  Sender: FDA-Public Use
  Company Number: US-AMGEN-KDL412151

PATIENT

DRUGS (7)
  1. ENBREL [Suspect]
     Indication: RHEUMATOID ARTHRITIS
     Dosage: 50 MG, QWK
     Route: 058
     Dates: start: 20090709
  2. METHOTREXATE [Concomitant]
     Dosage: UNK UNK, UNK
     Dates: start: 20080815
  3. FOLIC ACID [Concomitant]
     Dosage: UNK UNK, UNK
     Dates: start: 20080815
  4. IBUPROFEN [Concomitant]
     Dosage: UNK UNK, PRN
  5. ACETAMINOPHEN AND HYDROCODONE BITARTRATE [Concomitant]
  6. METOPROLOL TARTRATE [Concomitant]
  7. NIMESULIDE [Concomitant]

REACTIONS (1)
  - UTERINE SPASM [None]
